FAERS Safety Report 19673370 (Version 1)
Quarter: 2021Q3

REPORT INFORMATION
  Report Type: Report from Study
  Country: US (occurrence: US)
  Receive Date: 20210809
  Receipt Date: 20210809
  Transmission Date: 20211014
  Serious: Yes (Death, Other)
  Sender: FDA-Public Use
  Company Number: US-AUROBINDO-AUR-APL-2021-033491

PATIENT
  Sex: Male

DRUGS (2)
  1. KETAMINE HYDROCHLORIDE. [Suspect]
     Active Substance: KETAMINE HYDROCHLORIDE
     Indication: CARDIOVASCULAR DISORDER
     Dosage: 0.4 MILLIGRAM/KILOGRAM (FOLLOWED BY IM KETAMINE 0.4 MG/KG)
     Route: 042
  2. KETAMINE HYDROCHLORIDE. [Suspect]
     Active Substance: KETAMINE HYDROCHLORIDE
     Indication: LUNG DISORDER

REACTIONS (1)
  - Death [Fatal]
